FAERS Safety Report 4364783-1 (Version None)
Quarter: 2004Q2

REPORT INFORMATION
  Report Type: 
  Country: None (occurrence: None)
  Receive Date: 20040521
  Receipt Date: 20040514
  Transmission Date: 20050107
  Serious: Yes (Hospitalization)
  Sender: FDA-Public Use
  Company Number: 2004PK00870

PATIENT
  Age: 72 Year
  Sex: Female
  Weight: 70 kg

DRUGS (5)
  1. METOPROLOL SUCCINATE [Suspect]
     Indication: HYPERTENSION
     Dosage: 47 .5 MG DAILY PO
     Route: 048
     Dates: start: 20000101
  2. ACTRAPID HUMAN [Suspect]
     Indication: DIABETES MELLITUS INSULIN-DEPENDENT
     Dosage: 62 IU DAILY SQ
     Route: 058
     Dates: start: 19980101
  3. PROTAPHAN HUMAN [Suspect]
     Indication: DIABETES MELLITUS INSULIN-DEPENDENT
     Dosage: 10 IU DAILY SQ
     Route: 058
     Dates: start: 19980101
  4. ASPIRIN [Concomitant]
  5. CO-DIOVAN [Concomitant]

REACTIONS (3)
  - DRUG INTERACTION [None]
  - MARKEDLY REDUCED DIETARY INTAKE [None]
  - SHOCK HYPOGLYCAEMIC [None]
